FAERS Safety Report 5825960-3 (Version None)
Quarter: 2008Q3

REPORT INFORMATION
  Report Type: 
  Country: None (occurrence: None)
  Receive Date: 20080729
  Receipt Date: 20080729
  Transmission Date: 20090109
  Serious: Yes (Hospitalization)
  Sender: FDA-Public Use
  Company Number: PHEH2002US08234

PATIENT
  Sex: Female
  Weight: 121.5 kg

DRUGS (6)
  1. RAD 666 RAD+ [Suspect]
     Indication: RENAL TRANSPLANT
     Dosage: 0.75 MG, BID
     Route: 048
     Dates: start: 19990611, end: 20010530
  2. SDZ RAD [Suspect]
     Indication: RENAL TRANSPLANT
     Dosage: UNKNOWN
     Route: 048
     Dates: start: 20010531, end: 20010629
  3. SDZ RAD [Suspect]
     Dosage: 1.25 MG, BID
     Route: 048
     Dates: start: 20010630
  4. NEORAL [Suspect]
     Indication: RENAL TRANSPLANT
     Dosage: UNKNOWN
     Route: 048
     Dates: start: 19990611, end: 20010806
  5. NEORAL [Suspect]
     Dosage: 75 MG, BID
     Route: 048
     Dates: start: 20010807
  6. PREDNISONE [Suspect]
     Indication: RENAL TRANSPLANT
     Dosage: 7.5 MG, QD
     Route: 048
     Dates: start: 20000602

REACTIONS (2)
  - INCISIONAL HERNIA [None]
  - INCISIONAL HERNIA REPAIR [None]
